FAERS Safety Report 6016989-3 (Version None)
Quarter: 2008Q4

REPORT INFORMATION
  Report Type: 
  Country: None (occurrence: None)
  Receive Date: 20081223
  Receipt Date: 20081217
  Transmission Date: 20090506
  Serious: Yes (Other)
  Sender: FDA-Public Use
  Company Number: GB-RANBAXY-2008RR-20083

PATIENT
  Age: 50 Year
  Sex: Female
  Weight: 78.5 kg

DRUGS (4)
  1. RANITIDINE [Suspect]
     Indication: DYSPEPSIA
     Dosage: 300 MG, QD
     Route: 048
     Dates: start: 20080527, end: 20081101
  2. DOXYCYCLINE [Suspect]
     Indication: ROSACEA
     Dosage: 100 MG, QD
     Route: 048
     Dates: start: 20051019, end: 20081101
  3. AMITRIPTYLINE [Concomitant]
     Indication: HEADACHE
     Dosage: 20 MG, UNK
     Route: 048
     Dates: start: 20080221
  4. LEVOTHYROXINE SODIUM [Concomitant]
     Dosage: 150 UG, QD

REACTIONS (1)
  - ARTHRALGIA [None]
